FAERS Safety Report 7640871-9 (Version None)
Quarter: 2011Q3

REPORT INFORMATION
  Report Type: 
  Country: None (occurrence: None)
  Receive Date: 20110728
  Receipt Date: 20110715
  Transmission Date: 20111222
  Serious: Yes (Hospitalization)
  Sender: FDA-Public Use
  Company Number: US-JNJFOC-20110707190

PATIENT
  Sex: Female
  Weight: 108.86 kg

DRUGS (8)
  1. CLARITIN [Concomitant]
     Indication: MULTIPLE ALLERGIES
     Route: 048
  2. HYZAAR [Concomitant]
     Indication: BLOOD PRESSURE
     Dosage: 37.5/25 MG
     Route: 048
  3. VANCOMYCIN [Concomitant]
     Indication: CLOSTRIDIAL INFECTION
     Route: 048
  4. REMICADE [Suspect]
     Indication: RHEUMATOID ARTHRITIS
     Route: 042
     Dates: start: 20110215
  5. IMURAN [Concomitant]
     Indication: CROHN'S DISEASE
     Route: 048
     Dates: start: 20101001
  6. ASACOL [Concomitant]
     Indication: CROHN'S DISEASE
     Route: 048
     Dates: start: 20100101
  7. REMICADE [Suspect]
     Indication: CROHN'S DISEASE
     Route: 042
     Dates: start: 20110215
  8. ATENOLOL [Concomitant]
     Indication: BLOOD PRESSURE
     Route: 048

REACTIONS (8)
  - CLOSTRIDIAL INFECTION [None]
  - FLUSHING [None]
  - GASTROINTESTINAL HAEMORRHAGE [None]
  - RENAL FAILURE [None]
  - INSOMNIA [None]
  - CROHN'S DISEASE [None]
  - PULMONARY EMBOLISM [None]
  - ALOPECIA [None]
